FAERS Safety Report 11080500 (Version 1)
Quarter: 2015Q2

REPORT INFORMATION
  Report Type: Spontaneous
  Country: GB (occurrence: GB)
  Receive Date: 20150501
  Receipt Date: 20150501
  Transmission Date: 20150821
  Serious: Yes (Other)
  Sender: FDA-Public Use
  Company Number: GB-ROCHE-1569794

PATIENT
  Age: 37 Year
  Sex: Female
  Weight: 64 kg

DRUGS (3)
  1. FEXOFENADINE [Concomitant]
     Active Substance: FEXOFENADINE\FEXOFENADINE HYDROCHLORIDE
     Route: 065
     Dates: start: 20141002
  2. HYPROMELLOSE [Concomitant]
     Active Substance: HYPROMELLOSES
     Dosage: PUT ONE OR TWO DROPS INTO THE AFFECTED EYE(S)
     Route: 050
     Dates: start: 20141002
  3. NAPROXEN. [Suspect]
     Active Substance: NAPROXEN
     Indication: PRODUCT USED FOR UNKNOWN INDICATION
     Route: 065

REACTIONS (2)
  - Rash pruritic [Recovered/Resolved]
  - Blister [Unknown]

NARRATIVE: CASE EVENT DATE: 20150312
